FAERS Safety Report 12284131 (Version 2)
Quarter: 2016Q2

REPORT INFORMATION
  Report Type: Spontaneous
  Country: DE (occurrence: DE)
  Receive Date: 20160419
  Receipt Date: 20160429
  Transmission Date: 20160815
  Serious: Yes (Other)
  Sender: FDA-Public Use
  Company Number: DE-ALLERGAN-1648574

PATIENT
  Age: 44 Year
  Sex: Female

DRUGS (1)
  1. ESMYA [Suspect]
     Active Substance: ULIPRISTAL ACETATE
     Indication: UTERINE LEIOMYOMA
     Dosage: 5 MG, DAILY
     Route: 048
     Dates: start: 20150904, end: 201512

REACTIONS (4)
  - Uterine leiomyoma [Recovered/Resolved]
  - Amenorrhoea [Recovered/Resolved]
  - Endometrial sarcoma [Recovered/Resolved]
  - Uterine haemorrhage [Recovered/Resolved]

NARRATIVE: CASE EVENT DATE: 20140312
